FAERS Safety Report 6618952-8 (Version None)
Quarter: 2010Q1

REPORT INFORMATION
  Report Type: 
  Country: None (occurrence: None)
  Receive Date: 20100308
  Receipt Date: 20100301
  Transmission Date: 20100710
  Serious: Yes (Life-Threatening)
  Sender: FDA-Public Use
  Company Number: IT-BAXTER-2010BH001865

PATIENT
  Age: 20 Year
  Sex: Female

DRUGS (12)
  1. ENDOXAN BAXTER [Suspect]
     Indication: ACUTE LYMPHOCYTIC LEUKAEMIA
     Route: 042
     Dates: start: 20090508, end: 20090510
  2. VINCRISTINE SULFATE [Suspect]
     Indication: ACUTE LYMPHOCYTIC LEUKAEMIA
     Route: 042
     Dates: start: 20090510, end: 20090512
  3. ZAVEDOS [Suspect]
     Indication: ACUTE LYMPHOCYTIC LEUKAEMIA
     Route: 042
     Dates: start: 20090512, end: 20090513
  4. METHYLPREDNISOLONE [Suspect]
     Indication: ACUTE LYMPHOCYTIC LEUKAEMIA
     Route: 042
     Dates: start: 20090506, end: 20090510
  5. DEXAMETHASONE [Suspect]
     Indication: ACUTE LYMPHOCYTIC LEUKAEMIA
     Route: 042
     Dates: start: 20090512, end: 20090530
  6. ELSPAR [Suspect]
     Indication: ACUTE LYMPHOCYTIC LEUKAEMIA
     Route: 042
     Dates: start: 20090519, end: 20090521
  7. METHOTREXATE [Concomitant]
     Indication: DRUG USE FOR UNKNOWN INDICATION
     Route: 037
     Dates: start: 20090513, end: 20090513
  8. CYTARABINE [Concomitant]
     Indication: DRUG USE FOR UNKNOWN INDICATION
     Route: 037
     Dates: start: 20090513, end: 20090513
  9. URBASON [Concomitant]
     Indication: DRUG USE FOR UNKNOWN INDICATION
     Route: 037
     Dates: start: 20090513, end: 20090513
  10. LEUPROLIDE ACETATE [Concomitant]
     Indication: DRUG USE FOR UNKNOWN INDICATION
     Route: 037
     Dates: start: 20090515, end: 20090515
  11. MEROPENEM [Concomitant]
     Indication: STAPHYLOCOCCAL SEPSIS
     Route: 065
  12. DAPTOMYCIN [Concomitant]
     Indication: STAPHYLOCOCCAL SEPSIS
     Route: 065

REACTIONS (7)
  - ABDOMINAL PAIN [None]
  - ANAEMIA [None]
  - COLITIS ULCERATIVE [None]
  - HEPATOTOXICITY [None]
  - INTESTINAL HAEMORRHAGE [None]
  - MUCOSAL INFLAMMATION [None]
  - PNEUMONIA FUNGAL [None]
